FAERS Safety Report 6232965-X (Version None)
Quarter: 2009Q2

REPORT INFORMATION
  Report Type: 
  Country: None (occurrence: None)
  Receive Date: 20090617
  Receipt Date: 20090608
  Transmission Date: 20091009
  Serious: Yes (Disabling)
  Sender: FDA-Public Use
  Company Number: JP-ASTRAZENECA-2009SE02476

PATIENT
  Age: 49 Year
  Sex: Male

DRUGS (6)
  1. ANAPEINE [Suspect]
     Indication: EPIDURAL ANAESTHESIA
     Route: 008
     Dates: start: 20090601, end: 20090601
  2. ANAPEINE [Suspect]
     Indication: ANALGESIA
     Route: 008
     Dates: start: 20090601, end: 20090601
  3. ANAPEINE [Suspect]
     Route: 008
     Dates: start: 20090601, end: 20090605
  4. ANAPEINE [Suspect]
     Route: 008
     Dates: start: 20090601, end: 20090605
  5. FENTANYL [Suspect]
     Route: 008
     Dates: start: 20090601, end: 20090601
  6. XYLOCAINE [Concomitant]
     Indication: EPIDURAL TEST DOSE
     Dosage: DOSE UNKNOWN
     Route: 008

REACTIONS (2)
  - ANORECTAL DISORDER [None]
  - BLADDER DISORDER [None]
